FAERS Safety Report 9254770 (Version 1)
Quarter: 2013Q2

REPORT INFORMATION
  Report Type: Spontaneous
  Country: US (occurrence: None)
  Receive Date: 20130419
  Receipt Date: 20130419
  Transmission Date: 20140414
  Serious: Yes (Life-Threatening, Disabling, Other)
  Sender: FDA-Public Use
  Company Number: FK201301161

PATIENT
  Age: 36 Year
  Sex: Male

DRUGS (5)
  1. METOPROLOL TARTRATE [Suspect]
     Indication: SUICIDE ATTEMPT
  2. PROMETHAZINE (PROMETHAZINE) [Suspect]
     Indication: SUICIDE ATTEMPT
  3. PREGABALIN (PREGABALIN) [Suspect]
     Indication: SUICIDE ATTEMPT
     Dosage: 5-8 CAPSULES, ORAL
  4. MECLIZINE [Suspect]
     Indication: SUICIDE ATTEMPT
     Dosage: 12-15 TABLETS, ORAL.
  5. METHAMPHETAMINE [Concomitant]

REACTIONS (11)
  - Overdose [None]
  - Unresponsive to stimuli [None]
  - Respiratory failure [None]
  - Renal failure [None]
  - Adrenal insufficiency [None]
  - Hepatic ischaemia [None]
  - Sepsis [None]
  - Brain injury [None]
  - Cardiac arrest [None]
  - Hypotension [None]
  - Bradycardia [None]
